FAERS Safety Report 8231114-6 (Version None)
Quarter: 2012Q1

REPORT INFORMATION
  Report Type: 
  Country: None (occurrence: None)
  Receive Date: 20120322
  Receipt Date: 20120322
  Transmission Date: 20120608
  Serious: Yes (Life-Threatening)
  Sender: FDA-Public Use
  Company Number: None

PATIENT
  Sex: Male
  Weight: 73.481 kg

DRUGS (1)
  1. PACERONE [Suspect]
     Indication: ARRHYTHMIA
     Dosage: 1 TABLET
     Route: 048
     Dates: start: 20111201, end: 20120314

REACTIONS (4)
  - HEPATIC FAILURE [None]
  - NERVOUS SYSTEM DISORDER [None]
  - HEPATITIS [None]
  - TREMOR [None]
